FAERS Safety Report 15534192 (Version 4)
Quarter: 2019Q3

REPORT INFORMATION
  Report Type: Report from Study
  Country: US (occurrence: US)
  Receive Date: 20181021
  Receipt Date: 20190711
  Transmission Date: 20191004
  Serious: No
  Sender: FDA-Public Use
  Company Number: PHEH2018US044040

PATIENT
  Sex: Male

DRUGS (1)
  1. COSENTYX [Suspect]
     Active Substance: SECUKINUMAB
     Indication: ANKYLOSING SPONDYLITIS
     Dosage: 150 MG, QMO
     Route: 058

REACTIONS (6)
  - Infection [Unknown]
  - Fatigue [Unknown]
  - Drug ineffective [Unknown]
  - Malaise [Unknown]
  - Nausea [Unknown]
  - Product dispensing error [Unknown]
